FAERS Safety Report 7833219-8 (Version None)
Quarter: 2011Q4

REPORT INFORMATION
  Report Type: 
  Country: None (occurrence: None)
  Receive Date: 20111024
  Receipt Date: 20111019
  Transmission Date: 20120403
  Serious: Yes (Other)
  Sender: FDA-Public Use
  Company Number: US-PFIZER INC-2011252354

PATIENT
  Sex: Male
  Weight: 62.2 kg

DRUGS (9)
  1. CLONAZEPAM [Concomitant]
     Indication: DEPRESSION
     Dosage: UNK
  2. AZITHROMYCIN [Concomitant]
     Indication: CYSTIC FIBROSIS
     Dosage: UNK
  3. LEXAPRO [Concomitant]
     Indication: DEPRESSION
     Dosage: UNK
  4. ZOSYN [Suspect]
     Indication: CYSTIC FIBROSIS
     Dosage: UNK
     Dates: start: 20111006, end: 20111001
  5. AUGMENTIN [Concomitant]
     Indication: CYSTIC FIBROSIS
     Dosage: UNK
  6. CREON [Concomitant]
     Indication: ENZYME SUPPLEMENTATION
     Dosage: UNK
  7. ALLOPURINOL [Concomitant]
     Indication: CYSTIC FIBROSIS
     Dosage: UNK
  8. TOBRAMYCIN [Concomitant]
     Indication: CYSTIC FIBROSIS
     Dosage: UNK
  9. CIPROFLOXACIN [Concomitant]
     Indication: CYSTIC FIBROSIS
     Dosage: UNK

REACTIONS (1)
  - EYE DISORDER [None]
